FAERS Safety Report 14549522 (Version 1)
Quarter: 2018Q1

REPORT INFORMATION
  Report Type: Spontaneous
  Country: US (occurrence: US)
  Receive Date: 20180219
  Receipt Date: 20180219
  Transmission Date: 20180509
  Serious: Yes (Death)
  Sender: FDA-Public Use
  Company Number: US-PRINSTON PHARMACEUTICAL INC.-2018PRN00052

PATIENT
  Age: 34 Year
  Sex: Male
  Weight: 99.7 kg

DRUGS (8)
  1. TEMAZEPAM. [Suspect]
     Active Substance: TEMAZEPAM
     Route: 065
  2. U-47700 [Suspect]
     Active Substance: U-47700
     Route: 065
  3. DELORAZEPAM [Suspect]
     Active Substance: DELORAZEPAM
     Route: 065
  4. 3-FLUOROPHENMETRAZINE [Suspect]
     Active Substance: 3-FLUOROPHENMETRAZINE
     Route: 065
  5. DIAZEPAM. [Suspect]
     Active Substance: DIAZEPAM
     Route: 065
  6. METHAMPHETAMINE [Suspect]
     Active Substance: METHAMPHETAMINE
     Route: 065
  7. FLUBROMAZELAM [Suspect]
     Active Substance: FLUBROMAZOLAM
     Route: 065
  8. AMITRIPTYLINE [Suspect]
     Active Substance: AMITRIPTYLINE
     Route: 065

REACTIONS (3)
  - Toxicity to various agents [Fatal]
  - Sedation [Fatal]
  - Respiratory depression [Fatal]
